FAERS Safety Report 6283120-9 (Version None)
Quarter: 2009Q3

REPORT INFORMATION
  Report Type: 
  Country: None (occurrence: None)
  Receive Date: 20090724
  Receipt Date: 20090715
  Transmission Date: 20100115
  Serious: Yes (Hospitalization, Other)
  Sender: FDA-Public Use
  Company Number: A0798331A

PATIENT
  Sex: Female
  Weight: 80 kg

DRUGS (7)
  1. SERETIDE [Suspect]
     Indication: ASTHMA
     Dosage: 2PUFF THREE TIMES PER DAY
     Route: 055
     Dates: start: 20090401
  2. AEROLIN [Concomitant]
     Dates: start: 19890101
  3. HYDROXYZINE [Concomitant]
     Dosage: 1TAB TWICE PER DAY
     Dates: start: 19890101
  4. NAPHAZOLINE HCL [Concomitant]
     Dates: start: 20050101
  5. NAPROXEN [Concomitant]
  6. NIMESULIDE [Concomitant]
     Dosage: 400MG TWICE PER DAY
  7. CIPROFLOXACIN HCL [Concomitant]
     Dosage: 500MG TWICE PER DAY

REACTIONS (5)
  - HAEMORRHAGE [None]
  - HERNIA [None]
  - HERNIA REPAIR [None]
  - INFECTION [None]
  - OVERDOSE [None]
